FAERS Safety Report 10806274 (Version 1)
Quarter: 2015Q1

REPORT INFORMATION
  Report Type: Report from Study
  Country: US (occurrence: US)
  Receive Date: 20150217
  Receipt Date: 20150217
  Transmission Date: 20150721
  Serious: No
  Sender: FDA-Public Use
  Company Number: US-ABBVIE-14K-163-1251157-00

PATIENT
  Age: 51 Year
  Sex: Female

DRUGS (5)
  1. HUMIRA [Suspect]
     Active Substance: ADALIMUMAB
  2. HUMIRA [Suspect]
     Active Substance: ADALIMUMAB
     Dates: start: 20140530, end: 20140530
  3. LEVOTHYROXIN [Concomitant]
     Active Substance: LEVOTHYROXINE
     Indication: THYROID DISORDER
  4. HUMIRA [Suspect]
     Active Substance: ADALIMUMAB
     Dates: start: 20140613, end: 20140613
  5. HUMIRA [Suspect]
     Active Substance: ADALIMUMAB
     Indication: PSORIASIS
     Dates: start: 20140516, end: 20140516

REACTIONS (5)
  - Wrong technique in drug usage process [Unknown]
  - Drug effect incomplete [Recovering/Resolving]
  - Device issue [Unknown]
  - Incorrect dose administered [Unknown]
  - Drug dose omission [Recovered/Resolved]

NARRATIVE: CASE EVENT DATE: 20140516
